FAERS Safety Report 13242945 (Version 1)
Quarter: 2017Q1

REPORT INFORMATION
  Report Type: Spontaneous
  Country: US (occurrence: US)
  Receive Date: 20170216
  Receipt Date: 20170216
  Transmission Date: 20170428
  Serious: Yes (Hospitalization)
  Sender: FDA-Public Use
  Company Number: None

PATIENT
  Age: 58 Year
  Sex: Male
  Weight: 89.7 kg

DRUGS (25)
  1. ECHINACEA [Concomitant]
     Active Substance: ECHINACEA, UNSPECIFIED
  2. METOPROLOL SUCCINATE. [Concomitant]
     Active Substance: METOPROLOL SUCCINATE
  3. MULTIVITAMIN [Concomitant]
     Active Substance: VITAMINS
  4. SULFAMETHOXAZOLE-TRIMETHOPRIM [Concomitant]
     Active Substance: SULFAMETHOXAZOLE\TRIMETHOPRIM
  5. SALINE [Concomitant]
     Active Substance: SODIUM CHLORIDE
  6. MAGNESIUM HYDROXIDE. [Concomitant]
     Active Substance: MAGNESIUM HYDROXIDE
  7. ONDANSETRON [Concomitant]
     Active Substance: ONDANSETRON
  8. FLUTICASON/ACTUATION [Concomitant]
  9. METOCLOPRAMIDE. [Concomitant]
     Active Substance: METOCLOPRAMIDE
  10. MORPHINE [Concomitant]
     Active Substance: MORPHINE
  11. AZELASTINE [Concomitant]
     Active Substance: AZELASTINE
  12. ALUMINUM-MAGNESIUM HYDROXIDE-SIMETHICONE [Concomitant]
  13. CLOPIDOGREL [Concomitant]
     Active Substance: CLOPIDOGREL BISULFATE
  14. TIROFIBAN [Suspect]
     Active Substance: TIROFIBAN
     Indication: CATHETERISATION CARDIAC
     Dates: start: 20170112, end: 20170112
  15. ASPIRIN. [Concomitant]
     Active Substance: ASPIRIN
  16. ACETAMINOPHEN. [Concomitant]
     Active Substance: ACETAMINOPHEN
  17. DIPHENHYDRAMINE. [Concomitant]
     Active Substance: DIPHENHYDRAMINE
  18. HEPARIN [Concomitant]
     Active Substance: HEPARIN SODIUM
  19. NITROGLYCERIN. [Concomitant]
     Active Substance: NITROGLYCERIN
  20. ISOSORBIDE MONONITRATE. [Concomitant]
     Active Substance: ISOSORBIDE MONONITRATE
  21. RANITIDINE. [Concomitant]
     Active Substance: RANITIDINE
  22. COENZYME [Concomitant]
     Active Substance: UBIDECARENONE
  23. FEXOFENADINE [Concomitant]
     Active Substance: FEXOFENADINE\FEXOFENADINE HYDROCHLORIDE
  24. ATROPINE. [Concomitant]
     Active Substance: ATROPINE
  25. DOCUSATE [Concomitant]
     Active Substance: DOCUSATE

REACTIONS (1)
  - Platelet count decreased [None]

NARRATIVE: CASE EVENT DATE: 20170112
